FAERS Safety Report 18014436 (Version 1)
Quarter: 2020Q3

REPORT INFORMATION
  Report Type: Spontaneous
  Country: US (occurrence: US)
  Receive Date: 20200713
  Receipt Date: 20200713
  Transmission Date: 20201103
  Serious: Yes (Other)
  Sender: FDA-Public Use
  Company Number: None

PATIENT
  Age: 51 Year
  Sex: Female
  Weight: 60.3 kg

DRUGS (3)
  1. CLINDAMYCIN HAL 300 MG CAP AURO [Suspect]
     Active Substance: CLINDAMYCIN HYDROCHLORIDE
     Indication: PHARYNGITIS STREPTOCOCCAL
     Route: 048
     Dates: start: 20200709, end: 20200711
  2. VITAMIN B12 [Concomitant]
     Active Substance: CYANOCOBALAMIN
  3. MULTI VITAMIN [Concomitant]
     Active Substance: VITAMINS

REACTIONS (3)
  - Dysphagia [None]
  - Foreign body in throat [None]
  - Therapy cessation [None]

NARRATIVE: CASE EVENT DATE: 20200711
